FAERS Safety Report 9650969 (Version 1)
Quarter: 2013Q4

REPORT INFORMATION
  Report Type: Spontaneous
  Country: US (occurrence: US)
  Receive Date: 20131029
  Receipt Date: 20131029
  Transmission Date: 20140711
  Serious: No
  Sender: FDA-Public Use
  Company Number: US-PFIZER INC-2013305862

PATIENT
  Age: 48 Year
  Sex: Female
  Weight: 70.3 kg

DRUGS (2)
  1. LEVOXYL [Suspect]
     Indication: AUTOIMMUNE THYROIDITIS
     Dosage: 50 UG, 2X/DAY
     Dates: end: 2013
  2. ZOLOFT [Concomitant]
     Indication: DEPRESSION
     Dosage: 100 MG, 2X/DAY

REACTIONS (3)
  - Feeling abnormal [Not Recovered/Not Resolved]
  - Weight increased [Not Recovered/Not Resolved]
  - Hypothyroidism [Not Recovered/Not Resolved]
